FAERS Safety Report 10909131 (Version 1)
Quarter: 2015Q1

REPORT INFORMATION
  Report Type: Spontaneous
  Country: US (occurrence: US)
  Receive Date: 20150312
  Receipt Date: 20150312
  Transmission Date: 20150721
  Serious: No
  Sender: FDA-Public Use
  Company Number: US-SA-2014SA028507

PATIENT
  Age: 77 Year
  Sex: Male
  Weight: 95.7 kg

DRUGS (1)
  1. NASACORT ALLERGY 24HR [Suspect]
     Active Substance: TRIAMCINOLONE ACETONIDE
     Indication: LACRIMATION INCREASED
     Dosage: DOSAGE: 1 DOSE 2 SPRAYS FOR A WEEK
     Route: 065
     Dates: start: 201402, end: 201402

REACTIONS (3)
  - Feeling abnormal [Recovered/Resolved]
  - Balance disorder [Recovered/Resolved]
  - Headache [Recovered/Resolved]

NARRATIVE: CASE EVENT DATE: 20140210
